FAERS Safety Report 7197266-4 (Version None)
Quarter: 2010Q4

REPORT INFORMATION
  Report Type: 
  Country: None (occurrence: None)
  Receive Date: 20101226
  Receipt Date: 20101214
  Transmission Date: 20110411
  Serious: Yes (Other)
  Sender: FDA-Public Use
  Company Number: ES-ELI_LILLY_AND_COMPANY-ES201012003305

PATIENT
  Sex: Female

DRUGS (3)
  1. FORTEO [Suspect]
     Indication: OSTEOPOROSIS
     Dosage: 20 UG, DAILY (1/D)
     Route: 058
     Dates: start: 20090301, end: 20101201
  2. VARSON [Concomitant]
     Indication: DEMENTIA ALZHEIMER'S TYPE
     Dosage: UNK, DAILY (1/D)
     Route: 048
  3. LIPEMOL [Concomitant]
     Indication: HYPERCHOLESTEROLAEMIA
     Dosage: UNK, DAILY (1/D)
     Route: 048

REACTIONS (1)
  - DEMENTIA ALZHEIMER'S TYPE [None]
